FAERS Safety Report 7812462-8 (Version None)
Quarter: 2011Q4

REPORT INFORMATION
  Report Type: 
  Country: None (occurrence: None)
  Receive Date: 20111013
  Receipt Date: 20111004
  Transmission Date: 20120403
  Serious: Yes (Death, Hospitalization)
  Sender: FDA-Public Use
  Company Number: US-MERCK-1107USA02091

PATIENT
  Age: 55 Year
  Sex: Male

DRUGS (2)
  1. FOSAMAX [Suspect]
     Indication: OSTEOPOROSIS
     Route: 048
     Dates: start: 20010101
  2. PREDNISONE [Concomitant]
     Route: 065

REACTIONS (9)
  - NAUSEA [None]
  - OSTEONECROSIS OF JAW [None]
  - PAIN [None]
  - GASTRIC CANCER [None]
  - DEATH [None]
  - GASTRIC DISORDER [None]
  - INFECTION [None]
  - GASTROOESOPHAGEAL REFLUX DISEASE [None]
  - OESOPHAGEAL DISORDER [None]
